FAERS Safety Report 22650189 (Version 1)
Quarter: 2023Q2

REPORT INFORMATION
  Report Type: Report from Study
  Country: AU (occurrence: AU)
  Receive Date: 20230628
  Receipt Date: 20230628
  Transmission Date: 20230721
  Serious: Yes (Other)
  Sender: FDA-Public Use
  Company Number: AU-GILEAD-2023-0634268

PATIENT
  Sex: Male

DRUGS (2)
  1. EMTRICITABINE\TENOFOVIR [Suspect]
     Active Substance: EMTRICITABINE\TENOFOVIR
     Indication: HIV infection
     Dosage: UNK
     Route: 065
  2. EMTRICITABINE\TENOFOVIR [Suspect]
     Active Substance: EMTRICITABINE\TENOFOVIR
     Dosage: UNK, (ART)
     Route: 065
     Dates: start: 202204

REACTIONS (6)
  - Lipodystrophy acquired [Unknown]
  - Blood cholesterol increased [Unknown]
  - Nausea [Unknown]
  - Weight increased [Unknown]
  - Virologic failure [Unknown]
  - Product dose omission issue [Not Recovered/Not Resolved]
